FAERS Safety Report 16028854 (Version 1)
Quarter: 2019Q1

REPORT INFORMATION
  Report Type: Spontaneous
  Country: CA (occurrence: CA)
  Receive Date: 20190304
  Receipt Date: 20190304
  Transmission Date: 20190418
  Serious: Yes (Hospitalization, Other)
  Sender: FDA-Public Use
  Company Number: CA-HQ SPECIALTY-CA-2019INT000058

PATIENT

DRUGS (8)
  1. GEMCITABINE [Suspect]
     Active Substance: GEMCITABINE\GEMCITABINE HYDROCHLORIDE
     Indication: BLADDER CANCER
     Dosage: 1250 MG/M2, DAY 1 AND 8 (2 TO 4 CYCLES)
  2. DEXMETHASONE [Concomitant]
     Active Substance: DEXAMETHASONE
     Indication: PRODUCT USED FOR UNKNOWN INDICATION
     Dosage: 12 MG, (1 HOUR BEFORE CISPLATIN CHEMOTHERAPY)
     Route: 048
  3. ONDANSETRON [Concomitant]
     Active Substance: ONDANSETRON
     Dosage: 16 MG, (DAY 2 AFTER CHEMOTHERAPY)
     Route: 048
  4. CISPLATIN. [Suspect]
     Active Substance: CISPLATIN
     Dosage: 40 MG/M2, WEEKLY
  5. RADIOTHERAPY [Suspect]
     Active Substance: RADIATION THERAPY
     Indication: BLADDER CANCER
     Dosage: 60-66 GY, OVER 6 WEEKS
  6. DEXMETHASONE [Concomitant]
     Active Substance: DEXAMETHASONE
     Dosage: 4 MG, BID (ON DAYS 2 AND 3)
     Route: 048
  7. ONDANSETRON [Concomitant]
     Active Substance: ONDANSETRON
     Indication: PRODUCT USED FOR UNKNOWN INDICATION
     Dosage: 16 MG, (1 HOUR BEFORE CISPLATIN CHEMOTHERAPY)
     Route: 048
  8. CISPLATIN. [Suspect]
     Active Substance: CISPLATIN
     Indication: BLADDER CANCER
     Dosage: UNK (2 TO 4 CYCLES)

REACTIONS (1)
  - Urinary tract infection [Unknown]
